FAERS Safety Report 6895262-5 (Version None)
Quarter: 2010Q3

REPORT INFORMATION
  Report Type: 
  Country: None (occurrence: None)
  Receive Date: 20100728
  Receipt Date: 20100721
  Transmission Date: 20110219
  Serious: Yes (Life-Threatening, Other)
  Sender: FDA-Public Use
  Company Number: ACO_01531_2010

PATIENT
  Sex: Male
  Weight: 77.1115 kg

DRUGS (5)
  1. AMPYRA [Suspect]
     Indication: GAIT DISTURBANCE
     Dosage: (10 MG BID ORAL)
     Route: 048
     Dates: start: 20100501, end: 20100101
  2. TYSABRI [Concomitant]
  3. BACLOFEN [Concomitant]
  4. SENNA [Concomitant]
  5. KLONOPIN [Concomitant]

REACTIONS (3)
  - FATIGUE [None]
  - MALAISE [None]
  - SUICIDAL IDEATION [None]
